FAERS Safety Report 13398439 (Version 9)
Quarter: 2019Q1

REPORT INFORMATION
  Report Type: Report from Study
  Country: US (occurrence: US)
  Receive Date: 20170403
  Receipt Date: 20190315
  Transmission Date: 20190417
  Serious: Yes (Hospitalization)
  Sender: FDA-Public Use
  Company Number: US-ACTELION-A-US2016-140517

PATIENT
  Age: 55 Year
  Sex: Female
  Weight: 188 kg

DRUGS (13)
  1. PREDNISONE. [Concomitant]
     Active Substance: PREDNISONE
  2. POTASSIUM [Concomitant]
     Active Substance: POTASSIUM
  3. VENTOLIN [Concomitant]
     Active Substance: ALBUTEROL SULFATE
  4. IMURAN [Concomitant]
     Active Substance: AZATHIOPRINE
  5. LASIX [Concomitant]
     Active Substance: FUROSEMIDE
  6. CALCITONIN [Concomitant]
     Active Substance: CALCITONIN
  7. ADCIRCA [Concomitant]
     Active Substance: TADALAFIL
  8. METOLAZONE. [Concomitant]
     Active Substance: METOLAZONE
  9. SPIRONOLACTONE. [Concomitant]
     Active Substance: SPIRONOLACTONE
  10. XARELTO [Concomitant]
     Active Substance: RIVAROXABAN
  11. SYMBICORT [Concomitant]
     Active Substance: BUDESONIDE\FORMOTEROL FUMARATE DIHYDRATE
  12. VELETRI [Suspect]
     Active Substance: EPOPROSTENOL
     Indication: PULMONARY ARTERIAL HYPERTENSION
     Dosage: 16 NG/KG, PER MIN
     Route: 042
     Dates: start: 20121212
  13. LETAIRIS [Concomitant]
     Active Substance: AMBRISENTAN

REACTIONS (29)
  - Fluid overload [Unknown]
  - Pain [Unknown]
  - Diarrhoea [Unknown]
  - Skin culture positive [Recovering/Resolving]
  - Impaired healing [Not Recovered/Not Resolved]
  - Device dislocation [Unknown]
  - Feeling abnormal [Recovered/Resolved]
  - Fatigue [Recovered/Resolved]
  - Catheter site pustule [Recovering/Resolving]
  - Blood culture negative [Recovering/Resolving]
  - Haemorrhage [Unknown]
  - Weight fluctuation [Unknown]
  - Vascular device infection [Unknown]
  - Dyspnoea exertional [Unknown]
  - Sinusitis [Unknown]
  - Limb injury [Unknown]
  - Wound [Recovered/Resolved]
  - Dermatomyositis [Unknown]
  - Conjunctivitis [Recovered/Resolved]
  - Feeling hot [Recovered/Resolved]
  - Oedema [Unknown]
  - Dyspnoea [Unknown]
  - Swelling [Unknown]
  - Fall [Unknown]
  - Oedema peripheral [Unknown]
  - Biopsy skin [Unknown]
  - Hypersensitivity [Recovered/Resolved]
  - Device malfunction [Unknown]
  - Pyrexia [Not Recovered/Not Resolved]

NARRATIVE: CASE EVENT DATE: 201503
